FAERS Safety Report 13400991 (Version 1)
Quarter: 2017Q2

REPORT INFORMATION
  Report Type: Spontaneous
  Country: ES (occurrence: ES)
  Receive Date: 20170404
  Receipt Date: 20170404
  Transmission Date: 20170830
  Serious: Yes (Other)
  Sender: FDA-Public Use
  Company Number: ES-PFIZER INC-2017139724

PATIENT
  Age: 51 Year
  Sex: Female

DRUGS (4)
  1. 25-HYDROXYVITAMIN D3 [Suspect]
     Active Substance: CALCIFEDIOL ANHYDROUS
     Dosage: 16000 IU, MONTHLY
     Route: 048
  2. CALCIUM FOLINATE [Suspect]
     Active Substance: LEUCOVORIN CALCIUM
     Dosage: 500 MG, DAILY
     Route: 048
  3. 25-HYDROXYVITAMIN D3 [Suspect]
     Active Substance: CALCIFEDIOL ANHYDROUS
     Dosage: 16000 IU, TWICE A MONTH
     Route: 048
     Dates: start: 201204
  4. TERIPARATIDE [Suspect]
     Active Substance: TERIPARATIDE
     Indication: OSTEOPOROSIS
     Dosage: 20 UG, DAILY
     Route: 058

REACTIONS (8)
  - Enterobacter sepsis [None]
  - Septic shock [None]
  - Ascites [None]
  - Calciphylaxis [Recovering/Resolving]
  - Klebsiella sepsis [None]
  - Klebsiella infection [None]
  - Peritonitis [None]
  - Skin necrosis [None]
